FAERS Safety Report 7206813-5 (Version None)
Quarter: 2010Q4

REPORT INFORMATION
  Report Type: 
  Country: None (occurrence: None)
  Receive Date: 20101217
  Receipt Date: 20101213
  Transmission Date: 20110411
  Serious: No
  Sender: FDA-Public Use
  Company Number: 2009-190399-NL

PATIENT
  Age: 34 Year
  Sex: Female
  Weight: 72.6 kg

DRUGS (3)
  1. NUVARING [Suspect]
     Indication: MENSTRUATION IRREGULAR
     Dates: start: 20070209, end: 20070224
  2. NUVARING [Suspect]
     Indication: OVARIAN CYST
     Dates: start: 20070209, end: 20070224
  3. GLUCOPHAGE [Concomitant]

REACTIONS (45)
  - ABDOMINAL PAIN [None]
  - AMNESIA [None]
  - ARTHRALGIA [None]
  - BACK PAIN [None]
  - BALANCE DISORDER [None]
  - BRONCHITIS [None]
  - CEREBROVASCULAR ACCIDENT [None]
  - CONSTIPATION [None]
  - CYST [None]
  - DIZZINESS [None]
  - DRUG INTOLERANCE [None]
  - EMOTIONAL DISORDER [None]
  - EPISTAXIS [None]
  - FATIGUE [None]
  - HEADACHE [None]
  - HYPERACUSIS [None]
  - HYPERCOAGULATION [None]
  - HYPOAESTHESIA [None]
  - IMPAIRED WORK ABILITY [None]
  - INCORRECT DOSE ADMINISTERED [None]
  - INJECTION SITE THROMBOSIS [None]
  - LUNG NEOPLASM [None]
  - MEMORY IMPAIRMENT [None]
  - MENTAL STATUS CHANGES [None]
  - MIGRAINE [None]
  - MUCOUS MEMBRANE DISORDER [None]
  - NAUSEA [None]
  - NIGHT SWEATS [None]
  - OEDEMA PERIPHERAL [None]
  - OVARIAN CYST RUPTURED [None]
  - PAIN [None]
  - PAIN IN EXTREMITY [None]
  - PARAESTHESIA [None]
  - PELVIC PAIN [None]
  - POLYP [None]
  - PRURITUS [None]
  - PYREXIA [None]
  - RIB FRACTURE [None]
  - ROAD TRAFFIC ACCIDENT [None]
  - SINUSITIS [None]
  - SPINAL FRACTURE [None]
  - THROMBOSIS [None]
  - TRANSVERSE SINUS THROMBOSIS [None]
  - VISUAL IMPAIRMENT [None]
  - VOMITING [None]
